FAERS Safety Report 23319613 (Version 1)
Quarter: 2023Q4

REPORT INFORMATION
  Report Type: Spontaneous
  Country: NO (occurrence: NO)
  Receive Date: 20231220
  Receipt Date: 20231220
  Transmission Date: 20240109
  Serious: Yes (Life-Threatening)
  Sender: FDA-Public Use
  Company Number: None

PATIENT
  Age: 11 Year
  Weight: 42 kg

DRUGS (1)
  1. ATOMOXETINE HYDROCHLORIDE [Suspect]
     Active Substance: ATOMOXETINE HYDROCHLORIDE
     Indication: Attention deficit hyperactivity disorder
     Dosage: 10 MG , N06BA09 - ATOMOXETINE
     Route: 048
     Dates: start: 20231103, end: 20231115

REACTIONS (9)
  - Psychotic disorder [Recovering/Resolving]
  - Insomnia [Recovering/Resolving]
  - Fear [Unknown]
  - Nausea [Recovering/Resolving]
  - Irritability [Recovering/Resolving]
  - Disorientation [Unknown]
  - Dizziness [Recovering/Resolving]
  - Abnormal behaviour [Unknown]
  - Body temperature decreased [Unknown]

NARRATIVE: CASE EVENT DATE: 20231101
